FAERS Safety Report 21240867 (Version 1)
Quarter: 2022Q3

REPORT INFORMATION
  Report Type: Spontaneous
  Country: US (occurrence: None)
  Receive Date: 20220822
  Receipt Date: 20220822
  Transmission Date: 20221027
  Serious: Yes (Hospitalization)
  Sender: FDA-Public Use
  Company Number: None

PATIENT
  Age: 65 Year
  Sex: Male
  Weight: 94.05 kg

DRUGS (10)
  1. SULFAMETHOXAZOLE AND TRIMETHOPRIM [Suspect]
     Active Substance: SULFAMETHOXAZOLE\TRIMETHOPRIM
     Indication: Chronic sinusitis
     Dosage: OTHER QUANTITY : 1 TABLET(S);?FREQUENCY : TWICE A DAY;?
     Route: 048
     Dates: start: 20220806, end: 20220818
  2. ATORVASTATIN [Concomitant]
  3. ENALAPRIL [Concomitant]
     Active Substance: ENALAPRIL
  4. METFORMIN [Concomitant]
     Active Substance: METFORMIN HYDROCHLORIDE
  5. Muultivitamin [Concomitant]
  6. Probiotic [Concomitant]
  7. VITAMIN D3 [Concomitant]
  8. CANNABIDIOL\HERBALS [Concomitant]
     Active Substance: CANNABIDIOL\HERBALS
  9. Baby Apirin (last dose 8/18/22) [Concomitant]
  10. Omeprazole (last dose 8/18/22) [Concomitant]

REACTIONS (7)
  - Haemorrhage [None]
  - Petechiae [None]
  - Epistaxis [None]
  - Platelet count decreased [None]
  - Headache [None]
  - Rash [None]
  - Product label issue [None]

NARRATIVE: CASE EVENT DATE: 20220818
